FAERS Safety Report 6741368-0 (Version None)
Quarter: 2010Q2

REPORT INFORMATION
  Report Type: 
  Country: None (occurrence: None)
  Receive Date: 20100526
  Receipt Date: 20100514
  Transmission Date: 20101027
  Serious: Yes (Other)
  Sender: FDA-Public Use
  Company Number: PHHY2010NO32457

PATIENT
  Sex: Female

DRUGS (4)
  1. VOLTAREN [Suspect]
     Dosage: 50 MG, TID
     Route: 048
  2. PARACET [Suspect]
     Dosage: 1 G, TID
     Route: 048
  3. TRANDATE [Suspect]
     Indication: HYPERTENSION
     Dosage: 100 MG, BID
     Route: 048
  4. FRAGMIN [Suspect]
     Dosage: 5000 IU, UNK
     Route: 058

REACTIONS (3)
  - CAESAREAN SECTION [None]
  - DRUG EXPOSURE DURING PREGNANCY [None]
  - PREMATURE LABOUR [None]
